FAERS Safety Report 21171468 (Version 1)
Quarter: 2022Q3

REPORT INFORMATION
  Report Type: Spontaneous
  Country: FR (occurrence: FR)
  Receive Date: 20220804
  Receipt Date: 20220804
  Transmission Date: 20221027
  Serious: Yes (Other)
  Sender: FDA-Public Use
  Company Number: None

PATIENT
  Age: 71 Year
  Sex: Female
  Weight: 59.8 kg

DRUGS (1)
  1. IRINOTECAN [Suspect]
     Active Substance: IRINOTECAN
     Indication: Colon cancer metastatic
     Dosage: INTRAVENOUS USE
     Route: 042
     Dates: start: 20220621, end: 20220621

REACTIONS (3)
  - Rash maculo-papular [Recovered/Resolved]
  - Hot flush [Recovered/Resolved]
  - Palmar erythema [Recovered/Resolved]

NARRATIVE: CASE EVENT DATE: 20220621
